FAERS Safety Report 6411819-X (Version None)
Quarter: 2009Q4

REPORT INFORMATION
  Report Type: 
  Country: None (occurrence: None)
  Receive Date: 20091020
  Receipt Date: 20091007
  Transmission Date: 20100525
  Serious: Yes (Death, Hospitalization)
  Sender: FDA-Public Use
  Company Number: 2009AC000163

PATIENT
  Age: 55 Year
  Sex: Female

DRUGS (20)
  1. DIGOXIN [Suspect]
     Dosage: 0.125 MG; QD; PO
     Route: 048
  2. CADUET [Concomitant]
  3. DIOVAN [Concomitant]
  4. ESTRADIOL [Concomitant]
  5. METOPROLOL [Concomitant]
  6. METFORMIN HCL [Concomitant]
  7. NEURONTIN [Concomitant]
  8. POTASSIUM CHLORIDE [Concomitant]
  9. TRUSOPT [Concomitant]
  10. ACTOS [Concomitant]
  11. ENALAPRIL [Concomitant]
  12. LASIX [Concomitant]
  13. ATOPERLOL [Concomitant]
  14. DARVOCET [Concomitant]
  15. FLEXERIL [Concomitant]
  16. LEXAPRO [Concomitant]
  17. KLONOPIN [Concomitant]
  18. GLUCOPHAGE [Concomitant]
  19. DIOVAN [Concomitant]
  20. VASOTEC [Concomitant]

REACTIONS (19)
  - ANXIETY [None]
  - CATARACT [None]
  - CEREBROVASCULAR ACCIDENT [None]
  - CHOLELITHIASIS [None]
  - COUGH [None]
  - CRYING [None]
  - DEPRESSION [None]
  - DIABETES MELLITUS INADEQUATE CONTROL [None]
  - DYSPNOEA [None]
  - HOT FLUSH [None]
  - HYPERLIPIDAEMIA [None]
  - HYPERTENSION [None]
  - INJURY [None]
  - MOOD SWINGS [None]
  - PAIN [None]
  - RENAL FAILURE ACUTE [None]
  - SOCIAL PROBLEM [None]
  - THERAPEUTIC AGENT TOXICITY [None]
  - WHEEZING [None]
